FAERS Safety Report 6879507-3 (Version None)
Quarter: 2010Q3

REPORT INFORMATION
  Report Type: 
  Country: None (occurrence: None)
  Receive Date: 20100728
  Receipt Date: 20100713
  Transmission Date: 20110219
  Serious: Yes (Other)
  Sender: FDA-Public Use
  Company Number: PHHY2010DE46275

PATIENT
  Age: 20 Year
  Sex: Male

DRUGS (5)
  1. BENAZEPRIL HYDROCHLORIDE [Suspect]
  2. PREDNISOLONE [Suspect]
     Dosage: 6 MG
  3. SIROLIMUS [Concomitant]
  4. METHYLPREDNISOLONE [Concomitant]
     Dosage: DAILY 6 MG
  5. TACROLIMUS [Concomitant]

REACTIONS (2)
  - ANGIOEDEMA [None]
  - COUGH [None]
